FAERS Safety Report 13266010 (Version 2)
Quarter: 2017Q1

REPORT INFORMATION
  Report Type: Spontaneous
  Country: US (occurrence: US)
  Receive Date: 20170223
  Receipt Date: 20170330
  Transmission Date: 20170428
  Serious: Yes (Other)
  Sender: FDA-Public Use
  Company Number: PHEH2017US005081

PATIENT
  Age: 60 Year
  Sex: Male

DRUGS (7)
  1. LENVATINIB [Suspect]
     Active Substance: LENVATINIB
     Indication: RENAL CELL CARCINOMA
     Dosage: 18 MG, QD
     Route: 048
     Dates: start: 20160927
  2. AFINITOR [Suspect]
     Active Substance: EVEROLIMUS
     Indication: RENAL CELL CARCINOMA
     Route: 065
  3. IMODIUM [Concomitant]
     Active Substance: LOPERAMIDE HYDROCHLORIDE
     Indication: PRODUCT USED FOR UNKNOWN INDICATION
     Route: 065
  4. CELEXA [Concomitant]
     Active Substance: CITALOPRAM HYDROBROMIDE
     Indication: PRODUCT USED FOR UNKNOWN INDICATION
     Route: 065
  5. TYLENOL WITH CODEINE [Concomitant]
     Active Substance: ACETAMINOPHEN\CODEINE PHOSPHATE
     Indication: PRODUCT USED FOR UNKNOWN INDICATION
     Route: 065
  6. LENVATINIB [Suspect]
     Active Substance: LENVATINIB
     Dosage: 10 MG, QD
     Route: 048
  7. LENVATINIB [Suspect]
     Active Substance: LENVATINIB
     Dosage: 14 MG, QD
     Route: 048

REACTIONS (9)
  - Diverticular perforation [Unknown]
  - Fatigue [Unknown]
  - Oedema [Unknown]
  - Drug intolerance [Unknown]
  - White blood cell count increased [Recovering/Resolving]
  - Decreased appetite [Unknown]
  - Dysgeusia [Unknown]
  - Hypertension [Unknown]
  - Cough [Unknown]
